FAERS Safety Report 15829915 (Version 1)
Quarter: 2019Q1

REPORT INFORMATION
  Report Type: Spontaneous
  Country: US (occurrence: US)
  Receive Date: 20190115
  Receipt Date: 20190115
  Transmission Date: 20190417
  Serious: No
  Sender: FDA-Public Use
  Company Number: US-ALLERGAN-1837175US

PATIENT
  Age: 71 Year
  Sex: Female
  Weight: 50.79 kg

DRUGS (6)
  1. MULTIVITAMIN [Concomitant]
     Active Substance: VITAMINS
     Dosage: UNK
     Route: 048
  2. CALCIUM [Concomitant]
     Active Substance: CALCIUM
     Dosage: UNK
     Route: 048
  3. ARNICA [Concomitant]
     Active Substance: ARNICA MONTANA FLOWER
     Dosage: UNK
     Route: 065
  4. COCONUT OIL [Concomitant]
     Active Substance: COCONUT OIL
     Dosage: UNK
     Route: 065
  5. TYLENOL [Concomitant]
     Active Substance: ACETAMINOPHEN
     Indication: PAIN
     Dosage: UNK UNK, PRN
     Route: 048
  6. RESTASIS [Suspect]
     Active Substance: CYCLOSPORINE
     Indication: DRY EYE
     Dosage: 2 GTT, BID (AM AND PM)
     Route: 047
     Dates: start: 20180611

REACTIONS (7)
  - Vision blurred [Not Recovered/Not Resolved]
  - Lacrimation increased [Not Recovered/Not Resolved]
  - Pruritus [Not Recovered/Not Resolved]
  - Eye pain [Recovered/Resolved]
  - Product dose omission [Unknown]
  - Inappropriate schedule of product administration [Unknown]
  - Eye discharge [Not Recovered/Not Resolved]

NARRATIVE: CASE EVENT DATE: 20180611
